FAERS Safety Report 8218030-0 (Version None)
Quarter: 2012Q1

REPORT INFORMATION
  Report Type: 
  Country: None (occurrence: None)
  Receive Date: 20120319
  Receipt Date: 20120312
  Transmission Date: 20120608
  Serious: Yes (Other)
  Sender: FDA-Public Use
  Company Number: DE-PFIZER INC-2012067098

PATIENT
  Age: 48 Year
  Sex: Female

DRUGS (1)
  1. ARGATROBAN [Suspect]
     Indication: HEPARIN-INDUCED THROMBOCYTOPENIA
     Route: 042

REACTIONS (2)
  - DEAFNESS [None]
  - VISUAL IMPAIRMENT [None]
